FAERS Safety Report 18832910 (Version 1)
Quarter: 2021Q1

REPORT INFORMATION
  Report Type: Spontaneous
  Country: JP (occurrence: JP)
  Receive Date: 20210203
  Receipt Date: 20210203
  Transmission Date: 20210419
  Serious: Yes (Other)
  Sender: FDA-Public Use
  Company Number: JP-JNJFOC-20210144801

PATIENT
  Age: 94 Year
  Sex: Female

DRUGS (1)
  1. RISPERDAL [Suspect]
     Active Substance: RISPERIDONE
     Indication: DEMENTIA ALZHEIMER^S TYPE
     Route: 065

REACTIONS (4)
  - Coma [Recovered/Resolved]
  - Off label use [Unknown]
  - Hypoglycaemia [Recovered/Resolved]
  - Product use in unapproved indication [Unknown]
